FAERS Safety Report 18514044 (Version 1)
Quarter: 2020Q4

REPORT INFORMATION
  Report Type: Spontaneous
  Country: US (occurrence: US)
  Receive Date: 20201117
  Receipt Date: 20201117
  Transmission Date: 20210114
  Serious: No
  Sender: FDA-Public Use
  Company Number: US-NALPROPION PHARMACEUTICALS INC.-2019-008577

PATIENT
  Sex: Female
  Weight: 71.66 kg

DRUGS (1)
  1. CONTRAVE [Suspect]
     Active Substance: BUPROPION HYDROCHLORIDE\NALTREXONE HYDROCHLORIDE
     Indication: WEIGHT CONTROL
     Dosage: TWO IN THE AM AND ONE IN AFTERNOON
     Route: 048
     Dates: end: 201908

REACTIONS (2)
  - Headache [Recovering/Resolving]
  - Malaise [Unknown]
